FAERS Safety Report 4714068-6 (Version None)
Quarter: 2005Q3

REPORT INFORMATION
  Report Type: 
  Country: None (occurrence: None)
  Receive Date: 20050712
  Receipt Date: 20050624
  Transmission Date: 20060218
  Serious: Yes (Other)
  Sender: FDA-Public Use
  Company Number: FR_050606576

PATIENT
  Age: 68 Year
  Sex: Male
  Weight: 95 kg

DRUGS (3)
  1. GEMZAR [Suspect]
     Indication: HEPATIC NEOPLASM MALIGNANT
     Dosage: 2 G OTHER
     Dates: start: 20050428, end: 20050524
  2. OXALIPLATIN [Concomitant]
  3. ATACAND [Concomitant]

REACTIONS (4)
  - COLITIS ULCERATIVE [None]
  - DIARRHOEA [None]
  - PROCTOCOLITIS [None]
  - RECTAL ULCER [None]
